FAERS Safety Report 18620311 (Version 2)
Quarter: 2020Q4

REPORT INFORMATION
  Report Type: Spontaneous
  Country: US (occurrence: US)
  Receive Date: 20201215
  Receipt Date: 20201223
  Transmission Date: 20210114
  Serious: Yes (Other)
  Sender: FDA-Public Use
  Company Number: US-SERVIER-S20012485

PATIENT

DRUGS (7)
  1. TN UNSPECIFIED [Concomitant]
     Indication: PROPHYLAXIS
     Dosage: 30 MG, ONE DOSE
     Route: 048
     Dates: start: 20201120, end: 20201127
  2. TN UNSPECIFIED [Concomitant]
     Indication: PROPHYLAXIS
     Dosage: 500000 U, UNK
     Route: 048
     Dates: start: 20201124
  3. NORMAL SALINE [Concomitant]
     Active Substance: SODIUM CHLORIDE
     Indication: PRODUCT USED FOR UNKNOWN INDICATION
     Dosage: 1000 ML, ONE DOSE
     Route: 042
     Dates: start: 20201127, end: 20201127
  4. ONCASPAR [Suspect]
     Active Substance: PEGASPARGASE
     Indication: ACUTE LYMPHOCYTIC LEUKAEMIA
     Dosage: 3775 IU, ONE DOSE
     Route: 042
     Dates: start: 20201127, end: 20201127
  5. TN UNSPECIFIED [Concomitant]
     Indication: NAUSEA
     Dosage: 8 MG, TID
     Route: 048
     Dates: start: 20201124, end: 20201127
  6. TN UNSPECIFIED [Concomitant]
     Indication: ACUTE LYMPHOCYTIC LEUKAEMIA
     Dosage: 45 MG, BID
     Route: 048
     Dates: start: 20201124
  7. POLYETHYLENE GLYCOL [Concomitant]
     Active Substance: POLYETHYLENE GLYCOLS
     Indication: LAXATIVE SUPPORTIVE CARE
     Dosage: 17 G, QD
     Route: 048
     Dates: start: 20201124

REACTIONS (1)
  - Hypersensitivity [Recovered/Resolved]

NARRATIVE: CASE EVENT DATE: 20201127
